FAERS Safety Report 8803200 (Version 2)
Quarter: 2012Q4

REPORT INFORMATION
  Report Type: 
  Country: US (occurrence: US)
  Receive Date: 20120924
  Receipt Date: 20121023
  Transmission Date: 20130627
  Serious: Yes (Hospitalization)
  Sender: FDA-Public Use
  Company Number: US-ELI_LILLY_AND_COMPANY-US201209003209

PATIENT
  Sex: Male

DRUGS (3)
  1. HUMALOG 25% LISPRO, 75% NPL [Suspect]
     Indication: TYPE 2 DIABETES MELLITUS
     Dosage: UNK, unknown
  2. HUMALOG 25% LISPRO, 75% NPL [Suspect]
     Dosage: 20 u, each morning
  3. HUMALOG 25% LISPRO, 75% NPL [Suspect]
     Dosage: 30 u, each evening

REACTIONS (2)
  - Loss of consciousness [Unknown]
  - Intentional drug misuse [Not Recovered/Not Resolved]
